FAERS Safety Report 6655628-5 (Version None)
Quarter: 2010Q1

REPORT INFORMATION
  Report Type: 
  Country: None (occurrence: None)
  Receive Date: 20100329
  Receipt Date: 20100317
  Transmission Date: 20100710
  Serious: Yes (Other)
  Sender: FDA-Public Use
  Company Number: GB-PFIZER INC-2009254438

PATIENT
  Age: 55 Year
  Sex: Male

DRUGS (3)
  1. VFEND [Suspect]
     Indication: CANDIDIASIS
     Dosage: 300 MG, 2X/DAY
  2. CIPROFLOXACIN [Concomitant]
     Indication: SALMONELLOSIS
  3. IBUPROFEN [Concomitant]

REACTIONS (2)
  - HALLUCINATION, VISUAL [None]
  - NARCOLEPSY [None]
